FAERS Safety Report 9947704 (Version 2)
Quarter: 2014Q1

REPORT INFORMATION
  Report Type: Report from Study
  Country: PR (occurrence: PR)
  Receive Date: 20140303
  Receipt Date: 20140303
  Transmission Date: 20141002
  Serious: No
  Sender: FDA-Public Use
  Company Number: PR-ABBVIE-12P-131-0917412-00

PATIENT
  Age: 57 Year
  Sex: Female

DRUGS (12)
  1. HUMIRA [Suspect]
     Indication: RHEUMATOID ARTHRITIS
     Route: 058
     Dates: start: 2007, end: 201203
  2. HUMIRA [Suspect]
     Route: 058
     Dates: end: 201209
  3. HUMIRA [Suspect]
     Route: 058
     Dates: start: 20120913, end: 201211
  4. HUMIRA [Suspect]
     Route: 058
     Dates: start: 201212
  5. METHOTREXATE [Concomitant]
     Indication: RHEUMATOID ARTHRITIS
     Dosage: 3-5 TABLETS WEEKLY
     Route: 048
     Dates: start: 200711
  6. METHOTREXATE [Concomitant]
     Route: 058
  7. CELEBREX [Concomitant]
     Indication: RHEUMATOID ARTHRITIS
     Route: 048
  8. UNKNOWN PILL [Concomitant]
     Indication: RHEUMATOID ARTHRITIS
     Dosage: 1 TABLET AT BEDTIME
     Route: 048
     Dates: start: 2011
  9. UNKNOWN PILL [Concomitant]
     Indication: RHEUMATOID ARTHRITIS
     Dosage: AT BEDTIME
     Route: 048
     Dates: start: 201205
  10. UNKNOWN PILL [Concomitant]
     Indication: DEPRESSION
     Dates: start: 2010
  11. DIOVAN [Concomitant]
     Indication: HYPERTENSION
     Dosage: .60/12 TOTAL DAILY DOSE
     Route: 048
  12. SYNTHROID [Concomitant]
     Indication: THYROID DISORDER
     Dosage: 0.5 MGS TOTAL DAILY DOSE
     Route: 048

REACTIONS (5)
  - Nasopharyngitis [Recovered/Resolved]
  - Nasopharyngitis [Recovered/Resolved]
  - Nasopharyngitis [Unknown]
  - Nasopharyngitis [Recovered/Resolved]
  - Nasopharyngitis [Recovered/Resolved]
